FAERS Safety Report 12470182 (Version 2)
Quarter: 2016Q2

REPORT INFORMATION
  Report Type: Report from Study
  Country: SV (occurrence: SV)
  Receive Date: 20160616
  Receipt Date: 20160621
  Transmission Date: 20160815
  Serious: Yes (Death)
  Sender: FDA-Public Use
  Company Number: SV-ASTRAZENECA-2016SE62122

PATIENT
  Age: 42 Year
  Sex: Male

DRUGS (1)
  1. ATACAND [Suspect]
     Active Substance: CANDESARTAN CILEXETIL
     Dosage: 32.0MG UNKNOWN
     Route: 048

REACTIONS (1)
  - Death [Fatal]
